FAERS Safety Report 23808796 (Version 2)
Quarter: 2024Q2

REPORT INFORMATION
  Report Type: Spontaneous
  Country: US (occurrence: US)
  Receive Date: 20240502
  Receipt Date: 20240524
  Transmission Date: 20240716
  Serious: Yes (Hospitalization)
  Sender: FDA-Public Use
  Company Number: US-TEVA-VS-3190616

PATIENT
  Age: 3 Decade
  Sex: Male

DRUGS (11)
  1. METOCLOPRAMIDE [Suspect]
     Active Substance: METOCLOPRAMIDE
     Indication: Small intestinal obstruction
     Route: 065
  2. DULOXETINE [Suspect]
     Active Substance: DULOXETINE
     Indication: Abdominal pain
     Route: 065
  3. LACTULOSE [Suspect]
     Active Substance: LACTULOSE
     Indication: Small intestinal obstruction
     Route: 065
  4. HYDROMORPHONE [Suspect]
     Active Substance: HYDROMORPHONE
     Indication: Abdominal pain
     Dosage: PUMP OF 0-0.2MG/HOUR BASAL RATE WITH AS NEEDED 0.3MG EVERY 10MIN AND A FEW DAYS LATER
     Route: 065
  5. POLYETHYLENE GLYCOL [Suspect]
     Active Substance: POLYETHYLENE GLYCOL
     Indication: Small intestinal obstruction
     Route: 065
  6. DRONABINOL [Suspect]
     Active Substance: DRONABINOL
     Indication: Small intestinal obstruction
     Route: 065
  7. SENNA [Suspect]
     Active Substance: SENNA LEAF\SENNOSIDES\SENNOSIDES A AND B
     Indication: Small intestinal obstruction
     Route: 065
  8. BUPRENORPHINE [Suspect]
     Active Substance: BUPRENORPHINE
     Indication: Abdominal pain
     Route: 065
  9. FENTANYL [Suspect]
     Active Substance: FENTANYL\FENTANYL CITRATE
     Indication: Abdominal pain
     Dosage: INITIALLY 25UG/HOUR, TITRATED UP TO 125UG/HOUR
     Route: 065
  10. ROPIVACAINE [Suspect]
     Active Substance: ROPIVACAINE
     Indication: Abdominal pain
     Dosage: INFUSION AT A BASAL RATE OF 6 ML/HOUR WITH A BOLUS OF 4ML AVAILABLE EVERY HOUR
     Route: 008
  11. ACETAMINOPHEN [Suspect]
     Active Substance: ACETAMINOPHEN
     Indication: Abdominal pain
     Route: 065

REACTIONS (3)
  - Ileus [Unknown]
  - Drug ineffective [Unknown]
  - Sepsis [Unknown]
